FAERS Safety Report 7557762-4 (Version None)
Quarter: 2011Q2

REPORT INFORMATION
  Report Type: 
  Country: None (occurrence: None)
  Receive Date: 20110620
  Receipt Date: 20110607
  Transmission Date: 20111010
  Serious: Yes (Other)
  Sender: FDA-Public Use
  Company Number: US-MERCK-1102USA00323

PATIENT
  Age: 37 Year
  Sex: Female

DRUGS (5)
  1. EPZICOM [Concomitant]
     Route: 048
  2. VIREAD [Concomitant]
     Route: 048
  3. ISENTRESS [Suspect]
     Indication: HIV INFECTION
     Route: 048
     Dates: start: 20110113
  4. ISENTRESS [Suspect]
     Route: 048
     Dates: end: 20101007
  5. KALETRA [Concomitant]
     Route: 048
     Dates: start: 20101007

REACTIONS (2)
  - ABORTION SPONTANEOUS [None]
  - DRUG EXPOSURE DURING PREGNANCY [None]
